FAERS Safety Report 18672178 (Version 1)
Quarter: 2020Q4

REPORT INFORMATION
  Report Type: Spontaneous
  Country: US (occurrence: US)
  Receive Date: 20201229
  Receipt Date: 20201229
  Transmission Date: 20210114
  Serious: Yes (Death, Hospitalization)
  Sender: FDA-Public Use
  Company Number: US-JNJFOC-20201247879

PATIENT
  Age: 35 Year
  Sex: Female

DRUGS (2)
  1. DURAGESIC [Suspect]
     Active Substance: FENTANYL
     Indication: PRODUCT USED FOR UNKNOWN INDICATION
     Route: 051
  2. COCAINE [Suspect]
     Active Substance: COCAINE

REACTIONS (3)
  - Intentional product use issue [Fatal]
  - Intentional product misuse [Fatal]
  - Toxicity to various agents [Fatal]
